FAERS Safety Report 6097949-3 (Version None)
Quarter: 2009Q1

REPORT INFORMATION
  Report Type: 
  Country: None (occurrence: None)
  Receive Date: 20090227
  Receipt Date: 20090220
  Transmission Date: 20090719
  Serious: Yes (Hospitalization)
  Sender: FDA-Public Use
  Company Number: JP-EISAI MEDICAL RESEARCH-E2090-00651-SPO-JP

PATIENT
  Sex: Female

DRUGS (14)
  1. EXCEGRAN [Suspect]
     Indication: EPILEPSY
     Route: 048
     Dates: start: 20080822, end: 20080920
  2. HYSERENIN [Concomitant]
     Indication: EPILEPSY
     Route: 048
     Dates: start: 20080528, end: 20080728
  3. HYSERENIN [Concomitant]
     Route: 048
     Dates: start: 20080729, end: 20080804
  4. HYSERENIN [Concomitant]
     Route: 048
     Dates: start: 20080805, end: 20080812
  5. DEPAKENE [Concomitant]
     Indication: EPILEPSY
     Route: 048
     Dates: start: 20080813, end: 20080821
  6. DEPAKENE [Concomitant]
     Route: 048
     Dates: start: 20080822, end: 20081008
  7. FLOMOX [Concomitant]
     Indication: LYMPHADENITIS
     Route: 048
     Dates: start: 20080912, end: 20080916
  8. CALONAL [Concomitant]
     Indication: HEADACHE
     Route: 048
     Dates: start: 20080912, end: 20080901
  9. CALONAL [Concomitant]
     Indication: PYREXIA
  10. FLUMARIN [Concomitant]
     Indication: LYMPHADENITIS
     Route: 042
     Dates: start: 20080919, end: 20080922
  11. MYSTAN [Concomitant]
     Indication: EPILEPSY
     Route: 048
     Dates: start: 20080920, end: 20080921
  12. BIO-THREE (CLOSTRIDIUM BUTYRICUM COMBINED DRUG) [Concomitant]
     Indication: ENTEROCOLITIS
     Dosage: UNKNOWN
     Route: 048
     Dates: start: 20080925, end: 20081002
  13. CARBAMAZEPINE [Concomitant]
     Indication: CONVULSION
     Dates: start: 20080618, end: 20080714
  14. ANTIBIOTICS [Concomitant]
     Dates: start: 20080919

REACTIONS (1)
  - DRUG RASH WITH EOSINOPHILIA AND SYSTEMIC SYMPTOMS [None]
